FAERS Safety Report 21623288 (Version 1)
Quarter: 2022Q4

REPORT INFORMATION
  Report Type: Spontaneous
  Country: None (occurrence: US)
  Receive Date: 20221121
  Receipt Date: 20221121
  Transmission Date: 20230112
  Serious: No
  Sender: FDA-Public Use
  Company Number: US-Harrow Eye-2135108

PATIENT
  Age: 68 Year
  Sex: Female

DRUGS (1)
  1. NEOMYCIN AND POLYMYXIN B SULFATES AND DEXAMETHASONE [Suspect]
     Active Substance: DEXAMETHASONE\NEOMYCIN SULFATE\POLYMYXIN B SULFATE
     Indication: Product used for unknown indication
     Route: 047

REACTIONS (5)
  - Eye irritation [Unknown]
  - Eye pain [Unknown]
  - Foreign body in eye [Unknown]
  - Product quality issue [Unknown]
  - Vision blurred [Unknown]
